FAERS Safety Report 24907807 (Version 1)
Quarter: 2025Q1

REPORT INFORMATION
  Report Type: Report from Study
  Country: ES (occurrence: ES)
  Receive Date: 20250131
  Receipt Date: 20250131
  Transmission Date: 20250408
  Serious: Yes (Hospitalization)
  Sender: SANOFI AVENTIS
  Company Number: ES-SA-SAC20210928000255

PATIENT
  Age: 55 Year
  Sex: Male

DRUGS (5)
  1. DUPILUMAB [Suspect]
     Active Substance: DUPILUMAB
     Indication: Dermatitis atopic
     Route: 058
     Dates: start: 20210527, end: 20210527
  2. DUPILUMAB [Suspect]
     Active Substance: DUPILUMAB
     Dosage: 300 MG, QOW
     Route: 058
     Dates: start: 20210611, end: 20210903
  3. DUPILUMAB [Suspect]
     Active Substance: DUPILUMAB
     Dates: start: 20210904, end: 20211024
  4. DUPILUMAB [Suspect]
     Active Substance: DUPILUMAB
     Dosage: 300 MG, QOW
     Dates: start: 20211025
  5. ALBUTEROL [Concomitant]
     Active Substance: ALBUTEROL
     Route: 055
     Dates: start: 20190910

REACTIONS (1)
  - Tenosynovitis [Recovered/Resolved]

NARRATIVE: CASE EVENT DATE: 20210915
